FAERS Safety Report 8336653-5 (Version None)
Quarter: 2012Q2

REPORT INFORMATION
  Report Type: 
  Country: None (occurrence: None)
  Receive Date: 20120504
  Receipt Date: 20120425
  Transmission Date: 20120825
  Serious: Yes (Life-Threatening, Hospitalization, Other)
  Sender: FDA-Public Use
  Company Number: DE-BAYER-2011-108820

PATIENT
  Age: 23 Year
  Sex: Female

DRUGS (1)
  1. YASMIN [Suspect]
     Dosage: UNK
     Dates: start: 20040101, end: 20090101

REACTIONS (10)
  - FATIGUE [None]
  - LUNG DISORDER [None]
  - MOBILITY DECREASED [None]
  - PULMONARY EMBOLISM [None]
  - ADJUSTMENT DISORDER [None]
  - PULMONARY VASCULAR DISORDER [None]
  - INTRACARDIAC THROMBUS [None]
  - PULMONARY HYPERTENSION [None]
  - GAIT DISTURBANCE [None]
  - CARDIOMEGALY [None]
